FAERS Safety Report 16181993 (Version 3)
Quarter: 2019Q2

REPORT INFORMATION
  Report Type: Report from Study
  Country: FR (occurrence: FR)
  Receive Date: 20190410
  Receipt Date: 20190625
  Transmission Date: 20190711
  Serious: Yes (Death, Hospitalization, Other)
  Sender: FDA-Public Use
  Company Number: FR-JAZZ-2019-FR-005026

PATIENT

DRUGS (1)
  1. DEFITELIO [Suspect]
     Active Substance: DEFIBROTIDE SODIUM
     Indication: VENOOCCLUSIVE DISEASE
     Dosage: 25 MG/KG, QD
     Dates: start: 20160419, end: 20160503

REACTIONS (4)
  - Septic shock [Fatal]
  - Haemorrhage [Unknown]
  - Incorrect product administration duration [Unknown]
  - Viral haemorrhagic cystitis [Recovering/Resolving]

NARRATIVE: CASE EVENT DATE: 20160811
